FAERS Safety Report 24793815 (Version 1)
Quarter: 2024Q4

REPORT INFORMATION
  Report Type: Spontaneous
  Country: CN (occurrence: CN)
  Receive Date: 20241231
  Receipt Date: 20241231
  Transmission Date: 20250115
  Serious: Yes (Other)
  Sender: ALKEM
  Company Number: CN-ALKEM LABORATORIES LIMITED-CN-ALKEM-2024-17932

PATIENT
  Age: 9 Year
  Sex: Male

DRUGS (2)
  1. TACROLIMUS [Suspect]
     Active Substance: TACROLIMUS
     Indication: Henoch-Schonlein purpura nephritis
     Dosage: UNK
     Route: 065
  2. PREDNISONE [Suspect]
     Active Substance: PREDNISONE
     Indication: Henoch-Schonlein purpura nephritis
     Dosage: 5 MG/DAY (PRE AND POST-TREATMEN)
     Route: 065

REACTIONS (3)
  - Henoch-Schonlein purpura nephritis [Unknown]
  - Disease recurrence [Unknown]
  - Therapy non-responder [Unknown]
